FAERS Safety Report 11530057 (Version 1)
Quarter: 2015Q3

REPORT INFORMATION
  Report Type: Spontaneous
  Country: US (occurrence: US)
  Receive Date: 20150921
  Receipt Date: 20150921
  Transmission Date: 20151125
  Serious: Yes (Other)
  Sender: FDA-Public Use
  Company Number: US-JUBILANT CADISTA PHARMACEUTICALS-2015JUB00287

PATIENT
  Age: 4 Year
  Sex: Male

DRUGS (7)
  1. TERBUTALINE [Concomitant]
     Active Substance: TERBUTALINE
     Route: 042
  2. METHYLPREDNISOLONE. [Suspect]
     Active Substance: METHYLPREDNISOLONE
     Indication: STATUS ASTHMATICUS
     Route: 042
  3. EPINEPHRINE. [Concomitant]
     Active Substance: EPINEPHRINE
     Route: 030
  4. ALBUTEROL. [Suspect]
     Active Substance: ALBUTEROL
     Indication: ASTHMA
  5. MIXTURE OF HELIUM AND OXYGEN [Concomitant]
     Route: 050
  6. IPRATROPONIUM [Concomitant]
  7. AMINOPHYLLINE. [Concomitant]
     Active Substance: AMINOPHYLLINE
     Route: 042

REACTIONS (1)
  - Accelerated idioventricular rhythm [Recovered/Resolved]
